FAERS Safety Report 8045196-8 (Version None)
Quarter: 2012Q1

REPORT INFORMATION
  Report Type: 
  Country: None (occurrence: None)
  Receive Date: 20120113
  Receipt Date: 20110607
  Transmission Date: 20120608
  Serious: Yes (Hospitalization, Other)
  Sender: FDA-Public Use
  Company Number: US-ASTRAZENECA-2011SE34747

PATIENT
  Sex: Female

DRUGS (6)
  1. SEROQUEL XR [Suspect]
     Indication: DEPRESSION
     Route: 048
     Dates: start: 20090109
  2. ANTABUSE [Concomitant]
     Indication: SUBSTANCE ABUSE
  3. PAXIL [Concomitant]
     Indication: DEPRESSION
  4. SEROQUEL XR [Suspect]
     Route: 048
     Dates: start: 20090109
  5. ZOLOFT [Concomitant]
     Indication: DEPRESSION
  6. NALTREXONE [Concomitant]
     Indication: SUBSTANCE ABUSE
     Dosage: DAILY

REACTIONS (2)
  - ARTHRITIS [None]
  - KNEE OPERATION [None]
